FAERS Safety Report 6394365-1 (Version None)
Quarter: 2009Q4

REPORT INFORMATION
  Report Type: 
  Country: None (occurrence: None)
  Receive Date: 20091006
  Receipt Date: 20090923
  Transmission Date: 20100525
  Serious: Yes (Hospitalization)
  Sender: FDA-Public Use
  Company Number: GXKR2009TR10573

PATIENT
  Age: 17 Year
  Sex: Male

DRUGS (1)
  1. PREDNISOLONE [Suspect]
     Indication: ORCHITIS
     Dosage: 4 MG, QD, ORAL; 25 MG/DAY, INTRAVENOUS

REACTIONS (9)
  - ACUTE PSYCHOSIS [None]
  - CYCLOTHYMIC DISORDER [None]
  - GASTROINTESTINAL DISORDER [None]
  - HALLUCINATION, AUDITORY [None]
  - HYPERSEXUALITY [None]
  - INSOMNIA [None]
  - MUMPS [None]
  - PARANOIA [None]
  - PSYCHOTIC DISORDER [None]
